FAERS Safety Report 6550485-X (Version None)
Quarter: 2010Q1

REPORT INFORMATION
  Report Type: 
  Country: None (occurrence: None)
  Receive Date: 20100125
  Receipt Date: 20100118
  Transmission Date: 20100710
  Serious: Yes (Hospitalization)
  Sender: FDA-Public Use
  Company Number: A0840836A

PATIENT
  Age: 69 Year
  Sex: Female

DRUGS (1)
  1. AVANDIA [Suspect]
     Dosage: 2MG TWICE PER DAY
     Route: 065
     Dates: start: 20000101, end: 20010101

REACTIONS (4)
  - CARDIAC DISORDER [None]
  - DYSPNOEA [None]
  - HEART RATE DECREASED [None]
  - OEDEMA [None]
